FAERS Safety Report 16723629 (Version 1)
Quarter: 2019Q3

REPORT INFORMATION
  Report Type: Spontaneous
  Country: DE (occurrence: DE)
  Receive Date: 20190821
  Receipt Date: 20190821
  Transmission Date: 20191005
  Serious: Yes (Hospitalization)
  Sender: FDA-Public Use
  Company Number: DE-TEVA-2019-DE-1094001

PATIENT
  Age: 79 Year
  Sex: Male

DRUGS (8)
  1. SIMVASTATIN. [Concomitant]
     Active Substance: SIMVASTATIN
     Dosage: 30 MG, 0-0-0-1
  2. PANTOPRAZOL [Concomitant]
     Active Substance: PANTOPRAZOLE SODIUM
     Dosage: 40 MG, 1-0-0-0
  3. ALLOPURINOL. [Concomitant]
     Active Substance: ALLOPURINOL
     Dosage: 300 MG, 0-0-1-0
  4. AAMLODIPIN [Concomitant]
     Dosage: 10 MG, 0.5-0-0-0
  5. TAMSULOSIN [Concomitant]
     Active Substance: TAMSULOSIN
     Dosage: 0.4 MG, 0-0-1-0
  6. PERINDOPRIL/INDAPAMID [Concomitant]
     Dosage: 2.5,0.625 MG, 1-0-0-0
  7. TORASEMID [Concomitant]
     Active Substance: TORSEMIDE
     Dosage: 10 MG, 1-0-0-0
  8. METOPROLOL. [Suspect]
     Active Substance: METOPROLOL
     Dosage: 95 MG, 0.5-0-0.5-0

REACTIONS (2)
  - Ulcer [Unknown]
  - Condition aggravated [Unknown]
